FAERS Safety Report 4348038-7 (Version None)
Quarter: 2004Q2

REPORT INFORMATION
  Report Type: 
  Country: None (occurrence: None)
  Receive Date: 20040422
  Receipt Date: 20040407
  Transmission Date: 20050107
  Serious: Yes (Hospitalization)
  Sender: FDA-Public Use
  Company Number: L04-POL-01657-01

PATIENT
  Age: 52 Year
  Sex: Female

DRUGS (3)
  1. DILTIAZEM [Suspect]
     Indication: INTENTIONAL OVERDOSE
     Dosage: 3.6 G ONCE PO
     Route: 048
  2. POTASSIUM CHLORIDE [Suspect]
     Indication: INTENTIONAL OVERDOSE
     Dosage: 16 G ONCE PO
     Route: 048
  3. MAGNESIUM [Suspect]
     Indication: INTENTIONAL OVERDOSE
     Dosage: 6.5 G ONCE PO
     Route: 048

REACTIONS (9)
  - ATRIOVENTRICULAR BLOCK COMPLETE [None]
  - CARDIAC FAILURE [None]
  - HAEMODIALYSIS [None]
  - HAEMODYNAMIC INSTABILITY [None]
  - HYPOTONIA [None]
  - INTENTIONAL OVERDOSE [None]
  - MULTIPLE DRUG OVERDOSE [None]
  - RENAL FAILURE ACUTE [None]
  - SUICIDE ATTEMPT [None]
